FAERS Safety Report 9547423 (Version 3)
Quarter: 2013Q4

REPORT INFORMATION
  Report Type: Spontaneous
  Country: FR (occurrence: FR)
  Receive Date: 20130924
  Receipt Date: 20131016
  Transmission Date: 20140711
  Serious: Yes (Other)
  Sender: FDA-Public Use
  Company Number: FR-JNJFOC-20130910059

PATIENT
  Sex: Male

DRUGS (7)
  1. XEPLION [Suspect]
     Indication: SCHIZOPHRENIA
     Route: 030
  2. XEPLION [Suspect]
     Indication: SCHIZOPHRENIA
     Route: 030
  3. XEPLION [Suspect]
     Indication: SCHIZOPHRENIA
     Route: 030
  4. XEPLION [Suspect]
     Indication: SCHIZOPHRENIA
     Route: 030
  5. TERCIAN [Concomitant]
     Indication: SCHIZOPHRENIA
     Route: 065
  6. HAVLANE [Concomitant]
     Indication: PRODUCT USED FOR UNKNOWN INDICATION
     Route: 065
  7. TRILEPTAL [Concomitant]
     Indication: PRODUCT USED FOR UNKNOWN INDICATION
     Route: 048

REACTIONS (5)
  - Delirium [Unknown]
  - Therapeutic response decreased [Unknown]
  - Condition aggravated [Unknown]
  - Weight decreased [Unknown]
  - Anxiety [Unknown]
